FAERS Safety Report 17313057 (Version 1)
Quarter: 2020Q1

REPORT INFORMATION
  Report Type: Spontaneous
  Country: US (occurrence: US)
  Receive Date: 20200124
  Receipt Date: 20200124
  Transmission Date: 20200409
  Serious: No
  Sender: FDA-Public Use
  Company Number: US-ELI_LILLY_AND_COMPANY-US202001009727

PATIENT
  Age: 59 Year
  Sex: Female

DRUGS (1)
  1. TALTZ [Suspect]
     Active Substance: IXEKIZUMAB
     Indication: PRODUCT USED FOR UNKNOWN INDICATION
     Dosage: 80 MG, UNKNOWN
     Route: 065
     Dates: end: 20191227

REACTIONS (4)
  - Glomerular filtration rate decreased [Recovering/Resolving]
  - Nasopharyngitis [Recovering/Resolving]
  - White blood cell count decreased [Recovering/Resolving]
  - Injection site pain [Recovered/Resolved]
